FAERS Safety Report 8553353-7 (Version None)
Quarter: 2012Q3

REPORT INFORMATION
  Report Type: 
  Country: None (occurrence: None)
  Receive Date: 20120731
  Receipt Date: 20120724
  Transmission Date: 20120928
  Serious: Yes (Life-Threatening, Hospitalization, Disabling)
  Sender: FDA-Public Use
  Company Number: JP-ASTRAZENECA-2012SE53413

PATIENT
  Age: 14363 Day
  Sex: Male
  Weight: 72 kg

DRUGS (7)
  1. TASMOLIN [Concomitant]
     Indication: EXTRAPYRAMIDAL DISORDER
     Dates: start: 20100510
  2. SEROQUEL [Suspect]
     Indication: MANIA
     Route: 048
     Dates: start: 20111128
  3. NITRAZEPAM [Concomitant]
     Indication: INSOMNIA
     Dates: start: 20110425
  4. LEVOTOMIN [Suspect]
     Indication: INSOMNIA
     Route: 048
     Dates: start: 20101115
  5. LITHIUM CARBONATE [Concomitant]
     Indication: MANIA
     Dates: start: 20100621, end: 20120618
  6. ZOLPIDEM [Concomitant]
     Indication: INSOMNIA
  7. FEBURIC [Concomitant]
     Indication: HYPERURICAEMIA
     Dates: start: 20120305

REACTIONS (3)
  - DEEP VEIN THROMBOSIS [None]
  - PULMONARY EMBOLISM [None]
  - OFF LABEL USE [None]
